FAERS Safety Report 5672905-5 (Version None)
Quarter: 2008Q1

REPORT INFORMATION
  Report Type: 
  Country: None (occurrence: None)
  Receive Date: 20080319
  Receipt Date: 20080220
  Transmission Date: 20080703
  Serious: No
  Sender: FDA-Public Use
  Company Number: US-ASTRAZENECA-2007UW26208

PATIENT
  Age: 10 Year
  Sex: Female
  Weight: 30.4 kg

DRUGS (2)
  1. SYMBICORT [Suspect]
     Indication: ASTHMA
     Dosage: 80/4.5 UG BID
     Route: 055
     Dates: start: 20071111
  2. COMBIVENT [Concomitant]

REACTIONS (2)
  - DYSGEUSIA [None]
  - PHARYNGOLARYNGEAL PAIN [None]
